FAERS Safety Report 5055499-7 (Version None)
Quarter: 2006Q3

REPORT INFORMATION
  Report Type: 
  Country: None (occurrence: None)
  Receive Date: 20060714
  Receipt Date: 20060705
  Transmission Date: 20061208
  Serious: Yes (Other)
  Sender: FDA-Public Use
  Company Number: 2006084780

PATIENT

DRUGS (1)
  1. LYRICA [Suspect]

REACTIONS (1)
  - BLOOD GLUCOSE DECREASED [None]
